FAERS Safety Report 17467962 (Version 1)
Quarter: 2020Q1

REPORT INFORMATION
  Report Type: Spontaneous
  Country: US (occurrence: US)
  Receive Date: 20200227
  Receipt Date: 20200227
  Transmission Date: 20200409
  Serious: Yes (Death, Other)
  Sender: FDA-Public Use
  Company Number: US-SA-2020SA050098

PATIENT
  Sex: Male

DRUGS (1)
  1. ZANTAC 75 [Suspect]
     Active Substance: RANITIDINE HYDROCHLORIDE
     Dosage: SEVERAL TIMES A DAY
     Route: 065
     Dates: start: 2007, end: 2018

REACTIONS (2)
  - Plasma cell myeloma [Fatal]
  - Anxiety [Unknown]
